FAERS Safety Report 7740971-9 (Version None)
Quarter: 2011Q3

REPORT INFORMATION
  Report Type: 
  Country: None (occurrence: None)
  Receive Date: 20110909
  Receipt Date: 20110831
  Transmission Date: 20111222
  Serious: Yes (Hospitalization)
  Sender: FDA-Public Use
  Company Number: US-BAYER-2011-083147

PATIENT
  Age: 32 Year
  Sex: Female
  Weight: 77.098 kg

DRUGS (4)
  1. YAZ [Suspect]
     Indication: ACNE
     Dosage: UNK
     Dates: start: 20050101
  2. HYDROCODONE BITARTRATE AND ACETAMINOPHEN [Concomitant]
  3. DIOVAN [Concomitant]
  4. BLOOD PRESSURE MEDICATION (NOS) [Concomitant]
     Dosage: UNK
     Dates: start: 19970101

REACTIONS (3)
  - GALLBLADDER DISORDER [None]
  - CHOLELITHIASIS [None]
  - CHOLECYSTITIS [None]
